FAERS Safety Report 15179327 (Version 3)
Quarter: 2018Q3

REPORT INFORMATION
  Report Type: Report from Study
  Country: IL (occurrence: IL)
  Receive Date: 20180723
  Receipt Date: 20180822
  Transmission Date: 20181010
  Serious: Yes (Other)
  Sender: FDA-Public Use
  Company Number: IL-ROCHE-2154138

PATIENT
  Age: 59 Year
  Sex: Female

DRUGS (2)
  1. OCREVUS [Suspect]
     Active Substance: OCRELIZUMAB
     Dosage: SECOND INFUSION
     Route: 065
  2. OCREVUS [Suspect]
     Active Substance: OCRELIZUMAB
     Indication: RELAPSING-REMITTING MULTIPLE SCLEROSIS
     Route: 065
     Dates: start: 20180614

REACTIONS (5)
  - Cystitis [Not Recovered/Not Resolved]
  - Proteinuria [Not Recovered/Not Resolved]
  - Asthenia [Not Recovered/Not Resolved]
  - Vulvovaginal swelling [Not Recovered/Not Resolved]
  - Urine albumin/creatinine ratio increased [Unknown]

NARRATIVE: CASE EVENT DATE: 20180708
